FAERS Safety Report 4658512-1 (Version None)
Quarter: 2005Q2

REPORT INFORMATION
  Report Type: 
  Country: None (occurrence: None)
  Receive Date: 20050510
  Receipt Date: 20050510
  Transmission Date: 20051028
  Serious: Yes (Hospitalization)
  Sender: FDA-Public Use
  Company Number: None

PATIENT
  Age: 76 Year
  Sex: Female

DRUGS (12)
  1. LEVOFLOXACIN [Suspect]
     Indication: CHRONIC OBSTRUCTIVE AIRWAYS DISEASE EXACERBATED
     Dosage: 500 MG   QD    INTRAVENOU
     Route: 042
     Dates: start: 20050307, end: 20050316
  2. TYLENOL (CAPLET) [Concomitant]
  3. PROVENTIL [Concomitant]
  4. NORVASC [Concomitant]
  5. ASPIRIN [Concomitant]
  6. DEXAMETHASONE [Concomitant]
  7. FLOVENT [Concomitant]
  8. GUAIFENESSIN [Concomitant]
  9. IMDUR [Concomitant]
  10. PREVACID [Concomitant]
  11. SIMVASTATIN [Concomitant]
  12. SINGULAIR [Concomitant]

REACTIONS (1)
  - HEPATIC ENZYME INCREASED [None]
